FAERS Safety Report 19068084 (Version 1)
Quarter: 2021Q1

REPORT INFORMATION
  Report Type: Spontaneous
  Country: US (occurrence: US)
  Receive Date: 20210329
  Receipt Date: 20210329
  Transmission Date: 20210420
  Serious: No
  Sender: FDA-Public Use
  Company Number: US-RECORDATI-2021000167

PATIENT

DRUGS (1)
  1. ISTURISA [Suspect]
     Active Substance: OSILODROSTAT PHOSPHATE
     Indication: PRODUCT USED FOR UNKNOWN INDICATION
     Dosage: 1 MILLIGRAM, BID
     Dates: start: 20210104

REACTIONS (4)
  - Tinnitus [Unknown]
  - Dizziness [Unknown]
  - Hypoaesthesia oral [Unknown]
  - Hyperacusis [Unknown]

NARRATIVE: CASE EVENT DATE: 20210108
